FAERS Safety Report 4756507-0 (Version None)
Quarter: 2005Q3

REPORT INFORMATION
  Report Type: 
  Country: None (occurrence: None)
  Receive Date: 20050830
  Receipt Date: 20050718
  Transmission Date: 20060218
  Serious: No
  Sender: FDA-Public Use
  Company Number: US-GLAXOSMITHKLINE-A0566705A

PATIENT
  Age: 39 Year
  Sex: Male

DRUGS (4)
  1. WELLBUTRIN XL [Suspect]
     Indication: DEPRESSION
     Dosage: 150MG PER DAY
     Route: 048
  2. ATENOLOL [Concomitant]
  3. GEODON [Concomitant]
  4. TRILEPTAL [Concomitant]

REACTIONS (2)
  - DEPRESSED MOOD [None]
  - MOOD SWINGS [None]
